FAERS Safety Report 9502846 (Version 2)
Quarter: 2013Q3

REPORT INFORMATION
  Report Type: Spontaneous
  Country: US (occurrence: US)
  Receive Date: 20130906
  Receipt Date: 20130923
  Transmission Date: 20140515
  Serious: No
  Sender: FDA-Public Use
  Company Number: US-009507513-1309USA002475

PATIENT
  Age: 17 Year
  Sex: Female
  Weight: 62.59 kg

DRUGS (3)
  1. NEXPLANON [Suspect]
     Indication: CONTRACEPTION
     Dosage: UNK
     Route: 059
     Dates: start: 20130828
  2. FLAGYL [Concomitant]
  3. TERAZOL [Concomitant]

REACTIONS (4)
  - Rash [Recovered/Resolved]
  - Implant site oedema [Not Recovered/Not Resolved]
  - Implant site erythema [Recovered/Resolved]
  - Implant site pruritus [Not Recovered/Not Resolved]
